FAERS Safety Report 8042916-3 (Version None)
Quarter: 2012Q1

REPORT INFORMATION
  Report Type: 
  Country: None (occurrence: None)
  Receive Date: 20120112
  Receipt Date: 20120110
  Transmission Date: 20120608
  Serious: Yes (Death)
  Sender: FDA-Public Use
  Company Number: US-CELGENEUS-163-21880-12011033

PATIENT
  Sex: Female

DRUGS (9)
  1. DIOVAN [Concomitant]
     Route: 065
  2. DEXAMETHASONE TAB [Concomitant]
     Route: 065
  3. HYDROCHLOROTHIAZIDE [Concomitant]
     Route: 065
  4. REVLIMID [Suspect]
     Dosage: 10 MILLIGRAM
     Route: 048
     Dates: start: 20100513
  5. OXYCONTIN [Concomitant]
     Route: 065
  6. KLOR-CON [Concomitant]
     Route: 065
  7. BENADRYL [Concomitant]
     Route: 065
  8. FISH OIL [Concomitant]
     Route: 065
  9. CALCIUM [Concomitant]
     Route: 065

REACTIONS (1)
  - DEATH [None]
